FAERS Safety Report 4408063-4 (Version None)
Quarter: 2004Q3

REPORT INFORMATION
  Report Type: 
  Country: None (occurrence: None)
  Receive Date: 20040721
  Receipt Date: 20040708
  Transmission Date: 20050211
  Serious: Yes (Hospitalization)
  Sender: FDA-Public Use
  Company Number: 2004046050

PATIENT
  Age: 45 Year
  Sex: Female

DRUGS (11)
  1. LIPITOR [Suspect]
     Indication: ILL-DEFINED DISORDER
     Dosage: 40 MG (40 MG, 1 IN 1 D); UNKNOWN (SEE IMAGE)
     Route: 065
     Dates: start: 20030101
  2. PAROXETINE HYDROCHLORIDE [Concomitant]
  3. COSA[RODE [Concomitant]
  4. PANTOPRAZOLE SODIUM [Concomitant]
  5. INSULIN [Concomitant]
  6. INSULIN LISPRO [Concomitant]
  7. VERAPAMIL HYDROCHLORIDE [Concomitant]
  8. CLOPIDOGREL BISULFATE [Concomitant]
  9. FUROSEMIDE [Concomitant]
  10. PIZOTIFEN MALEATE [Concomitant]
  11. ENALAPRIL MALEATE [Concomitant]

REACTIONS (5)
  - DIABETES MELLITUS [None]
  - DISEASE PROGRESSION [None]
  - DRUG INTERACTION [None]
  - MYALGIA [None]
  - RENAL FAILURE [None]
